FAERS Safety Report 25827149 (Version 1)
Quarter: 2025Q3

REPORT INFORMATION
  Report Type: Spontaneous
  Country: CH (occurrence: CH)
  Receive Date: 20250920
  Receipt Date: 20250920
  Transmission Date: 20251021
  Serious: Yes (Death, Other)
  Sender: NOVARTIS
  Company Number: CH-002147023-NVSC2025CH145756

PATIENT
  Sex: Female

DRUGS (1)
  1. KISQALI [Suspect]
     Active Substance: RIBOCICLIB SUCCINATE
     Indication: HER2 negative breast cancer
     Route: 065

REACTIONS (4)
  - Death [Fatal]
  - Metastases to lung [Unknown]
  - Metastases to liver [Unknown]
  - HER2 negative breast cancer [Unknown]

NARRATIVE: CASE EVENT DATE: 20250716
